FAERS Safety Report 7351551-1 (Version None)
Quarter: 2011Q1

REPORT INFORMATION
  Report Type: 
  Country: None (occurrence: None)
  Receive Date: 20110314
  Receipt Date: 20110301
  Transmission Date: 20110831
  Serious: Yes (Life-Threatening, Hospitalization)
  Sender: FDA-Public Use
  Company Number: JP-AMGEN-JPNCT2011001534

PATIENT
  Age: 39 Year
  Sex: Male
  Weight: 69 kg

DRUGS (14)
  1. MINOMYCIN [Concomitant]
     Dosage: UNK
     Route: 048
  2. LOCOID [Concomitant]
     Dosage: UNK
     Route: 062
  3. HIRUDOID [Concomitant]
     Dosage: UNK
     Route: 062
  4. NEOPAREN 2 [Concomitant]
     Dosage: UNK
     Route: 042
  5. ZOSYN [Concomitant]
     Dosage: UNK
     Route: 042
  6. SOLDEM 3A [Concomitant]
     Dosage: UNK
     Route: 042
  7. PANITUMUMAB [Suspect]
     Indication: COLORECTAL CANCER
     Dosage: 6 MG/KG, Q2WK
     Route: 041
     Dates: start: 20100901, end: 20101013
  8. TAKEPRON [Concomitant]
     Dosage: UNK
     Route: 048
  9. ENSURE [Concomitant]
     Dosage: UNK
     Route: 048
  10. KERATINAMIN [Concomitant]
     Dosage: UNK
     Route: 062
  11. MORPHINE HYDROCHLORIDE [Concomitant]
     Dosage: UNK
     Route: 042
  12. RINDERON-VG [Concomitant]
     Dosage: UNK
     Route: 062
  13. DUROTEP [Concomitant]
     Dosage: UNK
     Route: 062
  14. MYSER [Concomitant]
     Dosage: UNK
     Route: 062

REACTIONS (5)
  - ILEAL FISTULA [None]
  - INTESTINAL OBSTRUCTION [None]
  - DRY SKIN [None]
  - DERMATITIS ACNEIFORM [None]
  - ILEAL PERFORATION [None]
